FAERS Safety Report 9797560 (Version 2)
Quarter: 2014Q1

REPORT INFORMATION
  Report Type: Spontaneous
  Country: DE (occurrence: None)
  Receive Date: 20131231
  Receipt Date: 20140326
  Transmission Date: 20141002
  Serious: Yes (Other)
  Sender: FDA-Public Use
  Company Number: 2013DE002897

PATIENT
  Sex: Female

DRUGS (12)
  1. ICLUSIG [Suspect]
     Indication: CHRONIC MYELOID LEUKAEMIA
     Dates: start: 20130910, end: 20131013
  2. ASS (ACETYLSALICYLIC ACID) [Concomitant]
  3. ISCOVER (CLOPIDOGREL BISULFATE) [Concomitant]
  4. CONCOR (BISOPROLOL FUMARATE) [Concomitant]
  5. ATACAND PLUS (CANDESARTAN CILEXETIL, HYDROCHLOROTHIAZIDE) [Concomitant]
  6. PULMICORT (BUDESONIDE) [Concomitant]
  7. DUROGESIC (FENTANYL) [Concomitant]
  8. PANTOZOL (ERYTHROMYCIN ETHYLSUCCINATE, SULFAFURAZOLE) [Concomitant]
  9. AMINEURIN (AMITRIPTYLINE HYDROCHLORIDE) [Concomitant]
  10. LYRICA (PREGABALIN) [Concomitant]
  11. ACTRAPID (INSULIN HUMAN) [Concomitant]
  12. SEVREDOL (MORPHINE SULFATE) [Concomitant]

REACTIONS (10)
  - Multi-organ failure [None]
  - Peripheral arterial occlusive disease [None]
  - Cardiopulmonary failure [None]
  - Skin necrosis [None]
  - Post procedural haemorrhage [None]
  - Generalised oedema [None]
  - Pneumonia [None]
  - Portal vein thrombosis [None]
  - No therapeutic response [None]
  - Anaemia [None]
